FAERS Safety Report 21848062 (Version 1)
Quarter: 2023Q1

REPORT INFORMATION
  Report Type: Spontaneous
  Country: US (occurrence: None)
  Receive Date: 20230111
  Receipt Date: 20230111
  Transmission Date: 20230418
  Serious: No
  Sender: FDA-Public Use
  Company Number: 2023A005420

PATIENT
  Age: 1080 Month
  Sex: Male
  Weight: 74.8 kg

DRUGS (1)
  1. TAGRISSO [Suspect]
     Active Substance: OSIMERTINIB
     Indication: Lung neoplasm malignant
     Route: 048
     Dates: start: 202210

REACTIONS (5)
  - Diarrhoea [Unknown]
  - Blister [Recovering/Resolving]
  - Lip swelling [Recovering/Resolving]
  - Eczema [Recovering/Resolving]
  - Weight decreased [Unknown]

NARRATIVE: CASE EVENT DATE: 20221001
